FAERS Safety Report 13370712 (Version 2)
Quarter: 2017Q2

REPORT INFORMATION
  Report Type: Report from Study
  Country: DE (occurrence: DE)
  Receive Date: 20170324
  Receipt Date: 20170425
  Transmission Date: 20170830
  Serious: Yes (Hospitalization)
  Sender: FDA-Public Use
  Company Number: PHHO2016DE011350

PATIENT
  Age: 56 Year
  Sex: Female
  Weight: 78 kg

DRUGS (8)
  1. LEE011 [Suspect]
     Active Substance: RIBOCICLIB
     Dosage: 400 MG, QD, DAY 1-21
     Route: 048
     Dates: start: 20160815
  2. VALSARTAN. [Suspect]
     Active Substance: VALSARTAN
     Dosage: 40 MG, QD
     Route: 048
  3. LEE011 [Suspect]
     Active Substance: RIBOCICLIB
     Indication: BREAST CANCER
     Dosage: 600 MG, QD, DAY 1 -21
     Route: 048
     Dates: start: 20141208, end: 20160719
  4. LEE011 [Suspect]
     Active Substance: RIBOCICLIB
     Dosage: 400 MG, QD, DAY 1 -21
     Route: 048
     Dates: start: 20160720, end: 20160803
  5. VALSARTAN. [Suspect]
     Active Substance: VALSARTAN
     Indication: HYPERTENSION
     Dosage: 80 MG, QD
     Route: 048
     Dates: start: 201407
  6. THYRONAJOD [Suspect]
     Active Substance: LEVOTHYROXINE SODIUM\POTASSIUM IODIDE
     Indication: HYPOTHYROIDISM
     Dosage: 75 UG, QD
     Route: 048
     Dates: start: 1984
  7. COMPARATOR LETROZOLE [Suspect]
     Active Substance: LETROZOLE
     Indication: BREAST CANCER
     Dosage: 2.5 MG, QD
     Route: 048
     Dates: start: 20141208
  8. BISOPROLOL [Suspect]
     Active Substance: BISOPROLOL
     Indication: HYPERTENSION
     Dosage: 1.25 MG, QD
     Route: 048
     Dates: start: 2004

REACTIONS (1)
  - Sinus bradycardia [Recovered/Resolved with Sequelae]

NARRATIVE: CASE EVENT DATE: 20160804
